FAERS Safety Report 25942259 (Version 1)
Quarter: 2025Q4

REPORT INFORMATION
  Report Type: Report from Study
  Country: EU (occurrence: EU)
  Receive Date: 20251020
  Receipt Date: 20251020
  Transmission Date: 20260117
  Serious: Yes (Other)
  Sender: ABBVIE
  Company Number: EU-ABBVIE-6507302

PATIENT
  Age: 64 Year
  Sex: Female
  Weight: 51 kg

DRUGS (4)
  1. CARBIDOPA [Suspect]
     Active Substance: CARBIDOPA
     Indication: Parkinson^s disease
     Dosage: 4.0 ML MORNING DOSE
     Route: 050
     Dates: start: 20170120
  2. CARBIDOPA [Suspect]
     Active Substance: CARBIDOPA
  3. BENSERAZIDE HYDROCHLORIDE\LEVODOPA [Concomitant]
     Active Substance: BENSERAZIDE HYDROCHLORIDE\LEVODOPA
     Indication: Parkinson^s disease
     Dosage: MADOPAR DISPER
  4. NEUPRO [Concomitant]
     Active Substance: ROTIGOTINE
     Indication: Parkinson^s disease
     Dosage: NEUPRO PLASTER

REACTIONS (11)
  - Optic nerve injury [Not Recovered/Not Resolved]
  - Gait disturbance [Not Recovered/Not Resolved]
  - Glaucoma [Not Recovered/Not Resolved]
  - Diplopia [Not Recovered/Not Resolved]
  - Dyskinesia [Not Recovered/Not Resolved]
  - Tremor [Not Recovered/Not Resolved]
  - Memory impairment [Unknown]
  - Compulsions [Unknown]
  - Hallucination, visual [Not Recovered/Not Resolved]
  - Stoma site reaction [Not Recovered/Not Resolved]
  - On and off phenomenon [Not Recovered/Not Resolved]
